FAERS Safety Report 25807199 (Version 4)
Quarter: 2025Q4

REPORT INFORMATION
  Report Type: Spontaneous
  Country: US (occurrence: US)
  Receive Date: 20250916
  Receipt Date: 20251013
  Transmission Date: 20260118
  Serious: No
  Sender: TRAVERE THERAPEUTICS
  Company Number: US-TRAVERE-2025TVT01137

PATIENT
  Age: 20 Year
  Sex: Female

DRUGS (2)
  1. FILSPARI [Suspect]
     Active Substance: SPARSENTAN
     Indication: IgA nephropathy
     Dosage: CUTTING THE FILSPARI 400MG TABLETS IN HALF
     Route: 048
     Dates: start: 20250701
  2. FILSPARI [Suspect]
     Active Substance: SPARSENTAN
     Route: 048
     Dates: start: 202506

REACTIONS (4)
  - Dizziness [None]
  - Migraine [None]
  - Product administration error [Unknown]
  - Off label use [Unknown]
